FAERS Safety Report 6547833-3 (Version None)
Quarter: 2010Q1

REPORT INFORMATION
  Report Type: 
  Country: None (occurrence: None)
  Receive Date: 20100124
  Receipt Date: 20091030
  Transmission Date: 20100710
  Serious: Yes (Hospitalization)
  Sender: FDA-Public Use
  Company Number: JP-ALEXION-A200900835

PATIENT
  Sex: Male

DRUGS (18)
  1. ECULIZUMAB [Suspect]
     Indication: PAROXYSMAL NOCTURNAL HAEMOGLOBINURIA
     Dosage: 600 MG, SINGLE
     Route: 042
     Dates: start: 20071226, end: 20071226
  2. ECULIZUMAB [Suspect]
     Dosage: 600 MG, SINGLE
     Route: 042
     Dates: start: 20080104, end: 20080104
  3. ECULIZUMAB [Suspect]
     Dosage: 600 MG, SINGLE
     Route: 042
     Dates: start: 20080109, end: 20080109
  4. ECULIZUMAB [Suspect]
     Dosage: 600 MG, SINGLE
     Route: 042
     Dates: start: 20080116, end: 20080116
  5. ECULIZUMAB [Suspect]
     Dosage: 900 MG, APPROX. Q2W
     Route: 042
     Dates: start: 20080122
  6. PREDNISOLONE [Concomitant]
     Indication: PAROXYSMAL NOCTURNAL HAEMOGLOBINURIA
     Dosage: 10 MG, QD
     Route: 048
     Dates: start: 20090519
  7. PREDNISOLONE [Concomitant]
     Dosage: 10 MG, 1/2 DAY
     Route: 048
     Dates: start: 20091007, end: 20091013
  8. PREDNISOLONE [Concomitant]
     Dosage: 20 MG, QD
     Route: 048
     Dates: start: 20091020, end: 20091021
  9. PREDNISOLONE [Concomitant]
     Dosage: 15 MG, QD
     Route: 048
     Dates: start: 20091021, end: 20091027
  10. PREDNISOLONE [Concomitant]
     Dosage: 10 MG, QD
     Route: 048
     Dates: start: 20091027
  11. PRIMOBOLAN                         /00044802/ [Concomitant]
     Indication: PAROXYSMAL NOCTURNAL HAEMOGLOBINURIA
     Dosage: 10 MG, BID
     Dates: start: 20051102
  12. BAKTAR [Concomitant]
     Indication: INFECTION PROPHYLAXIS
     Dosage: 1 G, QOD
     Dates: start: 20030601
  13. ASPIRIN [Concomitant]
     Indication: THROMBOSIS PROPHYLAXIS
     Dosage: 100 MG, QD
     Dates: start: 20050412
  14. ALFAROL [Concomitant]
     Indication: MYELODYSPLASTIC SYNDROME
     Dosage: 0.25 UG, TID
     Dates: start: 20010612
  15. FOIPAN [Concomitant]
     Indication: REFLUX OESOPHAGITIS
     Dosage: 100 MG, TID
     Dates: start: 20040101
  16. TAKEPRON [Concomitant]
     Indication: REFLUX OESOPHAGITIS
     Dosage: 15 MG, QD
     Dates: start: 20040101
  17. CALONAL [Concomitant]
     Indication: PYREXIA
     Dosage: 400 MG, PRN
     Dates: start: 20080520
  18. ITRIZOLE [Concomitant]
     Indication: INFECTION PROPHYLAXIS
     Dosage: 150 MG, QD
     Dates: start: 20081114

REACTIONS (1)
  - PYREXIA [None]
